APPROVED DRUG PRODUCT: RHINOCORT
Active Ingredient: BUDESONIDE
Strength: 0.032MG/INH
Dosage Form/Route: AEROSOL, METERED;NASAL
Application: N020233 | Product #001
Applicant: ASTRAZENECA LP
Approved: Feb 14, 1994 | RLD: No | RS: No | Type: DISCN